FAERS Safety Report 19785448 (Version 1)
Quarter: 2021Q3

REPORT INFORMATION
  Report Type: Spontaneous
  Country: PL (occurrence: PL)
  Receive Date: 20210903
  Receipt Date: 20210903
  Transmission Date: 20211014
  Serious: Yes (Hospitalization, Other)
  Sender: FDA-Public Use
  Company Number: PL-TEVA-2021-PL-1948510

PATIENT
  Age: 46 Year
  Sex: Male

DRUGS (10)
  1. RAMIPRIL. [Suspect]
     Active Substance: RAMIPRIL
     Indication: CARDIAC FAILURE CHRONIC
     Dosage: 1 DOSAGE FORMS DAILY;
     Route: 048
  2. EPLERENONE. [Suspect]
     Active Substance: EPLERENONE
     Indication: CARDIAC FAILURE CHRONIC
     Dosage: 1 DOSAGE FORMS DAILY;
     Route: 065
  3. CARVEDILOL. [Suspect]
     Active Substance: CARVEDILOL
     Indication: CARDIAC FAILURE CHRONIC
     Dosage: 2 DOSAGE FORMS DAILY;
     Route: 065
  4. ENTRESTO [Suspect]
     Active Substance: SACUBITRIL\VALSARTAN
     Indication: CARDIAC FAILURE CHRONIC
     Dosage: 2 DOSAGE FORMS DAILY; 1 DOSAGE FORM = 49/51MG
     Route: 065
  5. ACETYLSALICYLIC ACID [Suspect]
     Active Substance: ASPIRIN
     Indication: CARDIAC FAILURE CHRONIC
     Dosage: 1 DOSAGE FORMS DAILY;
     Route: 065
  6. ROSUVASTATIN. [Suspect]
     Active Substance: ROSUVASTATIN
     Indication: CARDIAC FAILURE CHRONIC
     Dosage: 1 DOSAGE FORMS DAILY;
     Route: 048
  7. ATORVASTATIN [Suspect]
     Active Substance: ATORVASTATIN
     Indication: CARDIAC FAILURE CHRONIC
     Dosage: 1 DOSAGE FORMS DAILY;
     Route: 065
  8. IVABRADINE [Suspect]
     Active Substance: IVABRADINE
     Indication: CARDIAC FAILURE CHRONIC
     Dosage: 10 DOSAGE FORMS DAILY;
     Route: 065
  9. TORASEMIDE [Suspect]
     Active Substance: TORSEMIDE
     Indication: CARDIAC FAILURE CHRONIC
     Dosage: 20 MILLIGRAM DAILY;
     Route: 065
  10. ENTRESTO [Suspect]
     Active Substance: SACUBITRIL\VALSARTAN
     Indication: CARDIAC FAILURE CHRONIC
     Dosage: 2 DOSAGE FORMS DAILY; 1 DOSAGE FORM = 49/51MG
     Route: 065

REACTIONS (7)
  - Bradycardia [Unknown]
  - Cardiac failure [Unknown]
  - Feeling abnormal [Unknown]
  - Electrocardiogram abnormal [Unknown]
  - Computerised tomogram coronary artery abnormal [Unknown]
  - Hypotension [Unknown]
  - Overdose [Unknown]

NARRATIVE: CASE EVENT DATE: 20190522
